FAERS Safety Report 19954492 (Version 1)
Quarter: 2021Q4

REPORT INFORMATION
  Report Type: Spontaneous
  Country: US (occurrence: US)
  Receive Date: 20211014
  Receipt Date: 20211014
  Transmission Date: 20220303
  Serious: Yes (Life-Threatening, Hospitalization)
  Sender: FDA-Public Use
  Company Number: US-MYLANLABS-2021M1072606

PATIENT
  Age: 55 Year
  Sex: Male

DRUGS (1)
  1. GLIPIZIDE [Suspect]
     Active Substance: GLIPIZIDE
     Indication: Product used for unknown indication
     Dosage: UNK
     Route: 065

REACTIONS (11)
  - Accidental overdose [Recovering/Resolving]
  - Seizure [Recovering/Resolving]
  - Hypoxia [Recovering/Resolving]
  - Hypoglycaemia [Recovering/Resolving]
  - Anterograde amnesia [Recovering/Resolving]
  - Retrograde amnesia [Recovering/Resolving]
  - Perseveration [Recovering/Resolving]
  - Disinhibition [Recovering/Resolving]
  - Brain injury [Recovering/Resolving]
  - Disorientation [Recovering/Resolving]
  - Neuropsychiatric symptoms [Recovering/Resolving]
